FAERS Safety Report 13994319 (Version 1)
Quarter: 2017Q3

REPORT INFORMATION
  Report Type: Report from Study
  Country: AU (occurrence: AU)
  Receive Date: 20170920
  Receipt Date: 20170920
  Transmission Date: 20171128
  Serious: Yes (Hospitalization, Other)
  Sender: FDA-Public Use
  Company Number: PHHY2017AU045467

PATIENT
  Age: 61 Year
  Sex: Male

DRUGS (4)
  1. ACETAMINOPHEN. [Concomitant]
     Active Substance: ACETAMINOPHEN
     Indication: PRODUCT USED FOR UNKNOWN INDICATION
     Route: 065
  2. STI 571 [Suspect]
     Active Substance: IMATINIB
     Dosage: 200 MG, TID
     Route: 048
  3. STI 571 [Suspect]
     Active Substance: IMATINIB
     Indication: MALIGNANT MELANOMA
     Dosage: 400 MG, BID
     Route: 048
  4. STI 571 [Suspect]
     Active Substance: IMATINIB
     Indication: SYNOVITIS
     Dosage: 200 MG, BID
     Route: 048
     Dates: start: 20161222

REACTIONS (8)
  - Pneumonitis [Recovered/Resolved with Sequelae]
  - Respiratory rate increased [Unknown]
  - Swelling face [Recovered/Resolved]
  - Dyspnoea [Unknown]
  - Fatigue [Unknown]
  - Hiccups [Unknown]
  - Liver function test increased [Recovered/Resolved]
  - Malaise [Unknown]

NARRATIVE: CASE EVENT DATE: 201703
